FAERS Safety Report 9667375 (Version 2)
Quarter: 2014Q1

REPORT INFORMATION
  Report Type: Spontaneous
  Country: US (occurrence: US)
  Receive Date: 20131104
  Receipt Date: 20140319
  Transmission Date: 20141002
  Serious: Yes (Hospitalization)
  Sender: FDA-Public Use
  Company Number: US-B.I. PHARMACEUTICALS,INC./RIDGEFIELD-2013-BI-34146BP

PATIENT
  Sex: Female
  Weight: 128.82 kg

DRUGS (12)
  1. PRADAXA [Suspect]
     Indication: ATRIAL FIBRILLATION
     Route: 065
     Dates: start: 20111118, end: 20130404
  2. OXYGEN [Concomitant]
     Route: 065
  3. ADVAIR [Concomitant]
     Route: 065
  4. ALBUTEROL INHALER [Concomitant]
     Route: 065
  5. ASA [Concomitant]
     Route: 065
  6. BISACODYL [Concomitant]
     Route: 065
  7. FLONASE [Concomitant]
     Route: 065
  8. GABAPENTIN [Concomitant]
     Route: 065
  9. LANTUS [Concomitant]
     Route: 065
  10. LASIX [Concomitant]
     Route: 065
  11. METOLAZONE [Concomitant]
     Route: 065
  12. METOPROLOL [Concomitant]
     Route: 065

REACTIONS (4)
  - Gastrointestinal haemorrhage [Unknown]
  - Anaemia [Unknown]
  - Renal failure acute [Unknown]
  - Thrombin time [Unknown]
